FAERS Safety Report 5952329-3 (Version None)
Quarter: 2008Q4

REPORT INFORMATION
  Report Type: 
  Country: None (occurrence: None)
  Receive Date: 20081022
  Receipt Date: 20080623
  Transmission Date: 20090506
  Serious: No
  Sender: FDA-Public Use
  Company Number: ALL1-2008-01589

PATIENT
  Age: 45 Year
  Sex: Female
  Weight: 86.2 kg

DRUGS (4)
  1. VYVANSE [Suspect]
     Indication: ATTENTION DEFICIT/HYPERACTIVITY DISORDER
     Dosage: 30 MG, 1X/DAY:QD, ORAL; 50 MG, 1X/DAY:QD, ORAL; 60 MG, 1X/DAY:QD(TWO 30 MG CAPSULES), ORAL
     Route: 048
     Dates: start: 20080301, end: 20080401
  2. VYVANSE [Suspect]
     Indication: ATTENTION DEFICIT/HYPERACTIVITY DISORDER
     Dosage: 30 MG, 1X/DAY:QD, ORAL; 50 MG, 1X/DAY:QD, ORAL; 60 MG, 1X/DAY:QD(TWO 30 MG CAPSULES), ORAL
     Route: 048
     Dates: start: 20080401, end: 20080521
  3. VYVANSE [Suspect]
     Indication: ATTENTION DEFICIT/HYPERACTIVITY DISORDER
     Dosage: 30 MG, 1X/DAY:QD, ORAL; 50 MG, 1X/DAY:QD, ORAL; 60 MG, 1X/DAY:QD(TWO 30 MG CAPSULES), ORAL
     Route: 048
     Dates: start: 20080522
  4. ACIPHEC (RABEPRAZOLE SODIUM) [Concomitant]

REACTIONS (3)
  - APHASIA [None]
  - DRUG INEFFECTIVE [None]
  - PSYCHIATRIC SYMPTOM [None]
